FAERS Safety Report 8419125-9 (Version None)
Quarter: 2012Q2

REPORT INFORMATION
  Report Type: 
  Country: None (occurrence: None)
  Receive Date: 20120607
  Receipt Date: 20120606
  Transmission Date: 20120825
  Serious: Yes (Death, Other)
  Sender: FDA-Public Use
  Company Number: PHFR2012GB002986

PATIENT
  Sex: Male

DRUGS (2)
  1. CLOZARIL [Suspect]
     Indication: SCHIZOPHRENIA
     Dosage: 250 MG
     Route: 048
     Dates: start: 20080130
  2. AMITRIPTYLINE HCL [Concomitant]
     Dosage: 10 MG, UNK
     Route: 048
     Dates: start: 20110420

REACTIONS (4)
  - DEATH [None]
  - CONVULSION [None]
  - FALL [None]
  - HEAD INJURY [None]
